FAERS Safety Report 13120934 (Version 1)
Quarter: 2017Q1

REPORT INFORMATION
  Report Type: Spontaneous
  Country: CH (occurrence: GB)
  Receive Date: 20170117
  Receipt Date: 20170117
  Transmission Date: 20170428
  Serious: Yes (Other)
  Sender: FDA-Public Use
  Company Number: CH-LPDUSPRD-20170015

PATIENT
  Age: 36 Year
  Sex: Female
  Weight: 59 kg

DRUGS (1)
  1. FERINJECT [Suspect]
     Active Substance: FERRIC CARBOXYMALTOSE
     Dosage: 1000 MG
     Route: 042
     Dates: start: 20161220, end: 20161220

REACTIONS (7)
  - Chills [Unknown]
  - Muscle spasms [Unknown]
  - Myalgia [Unknown]
  - Muscular weakness [Unknown]
  - Nausea [Unknown]
  - Vertigo [Unknown]
  - Influenza [Unknown]

NARRATIVE: CASE EVENT DATE: 20161221
